FAERS Safety Report 12660979 (Version 3)
Quarter: 2016Q4

REPORT INFORMATION
  Report Type: Spontaneous
  Country: US (occurrence: US)
  Receive Date: 20160817
  Receipt Date: 20161106
  Transmission Date: 20170207
  Serious: No
  Sender: FDA-Public Use
  Company Number: US-RELYPSA-RLY2016001240

PATIENT
  Sex: Male

DRUGS (17)
  1. VELTASSA [Suspect]
     Active Substance: PATIROMER
     Indication: HYPERKALAEMIA
     Dosage: 16.8 G, QD
     Route: 048
  2. VITAMIN B COMPLEX [Concomitant]
     Active Substance: CYANOCOBALAMIN\DEXPANTHENOL\NIACINAMIDE\PYRIDOXINE HYDROCHLORIDE\RIBOFLAVIN 5^-PHOSPHATE SODIUM\THIAMINE HYDROCHLORIDE\VITAMIN B COMPLEX
  3. VELTASSA [Suspect]
     Active Substance: PATIROMER
     Dosage: 8.4 G, UNKNOWN
     Route: 065
  4. FISH OIL [Concomitant]
     Active Substance: FISH OIL
  5. CLONAZEPAM. [Concomitant]
     Active Substance: CLONAZEPAM
  6. ATORVASTATIN CALCIUM. [Concomitant]
     Active Substance: ATORVASTATIN CALCIUM
  7. ASPIRIN                            /00002701/ [Concomitant]
     Active Substance: ASPIRIN
  8. TOPROL XL [Concomitant]
     Active Substance: METOPROLOL SUCCINATE
  9. MAG-TAB [Concomitant]
  10. CETIRIZINE HCL [Concomitant]
     Active Substance: CETIRIZINE HYDROCHLORIDE
  11. VITAMIN D3 [Concomitant]
     Active Substance: CHOLECALCIFEROL
  12. FLUOXETINE HCL [Concomitant]
     Active Substance: FLUOXETINE HYDROCHLORIDE
  13. ROBAXIN [Concomitant]
     Active Substance: METHOCARBAMOL
  14. PEPCID                             /00305201/ [Concomitant]
     Active Substance: ALUMINUM HYDROXIDE\MAGNESIUM CARBONATE
  15. FAMOTIDINE. [Concomitant]
     Active Substance: FAMOTIDINE
  16. ULTRAM [Concomitant]
     Active Substance: TRAMADOL HYDROCHLORIDE
  17. ALLOPURINOL. [Concomitant]
     Active Substance: ALLOPURINOL

REACTIONS (3)
  - Gastrointestinal disorder [Unknown]
  - Diarrhoea [Unknown]
  - Drug ineffective [Unknown]
